FAERS Safety Report 24550342 (Version 4)
Quarter: 2025Q3

REPORT INFORMATION
  Report Type: Report from Study
  Country: US (occurrence: US)
  Receive Date: 20241025
  Receipt Date: 20250910
  Transmission Date: 20251020
  Serious: Yes (Hospitalization)
  Sender: SUNOVION
  Company Number: US-SUMITOMO PHARMA SWITZERLAND GMBH-2024SPA004120

PATIENT
  Age: 72 Year
  Sex: Male

DRUGS (3)
  1. ORGOVYX [Suspect]
     Active Substance: RELUGOLIX
     Indication: Prostate cancer
     Route: 048
     Dates: start: 20240929, end: 20240929
  2. ORGOVYX [Suspect]
     Active Substance: RELUGOLIX
     Dosage: 120 MG, QD
     Route: 048
     Dates: start: 20240930
  3. XTANDI [Suspect]
     Active Substance: ENZALUTAMIDE

REACTIONS (15)
  - Hip arthroplasty [Unknown]
  - Glycosylated haemoglobin increased [Unknown]
  - Heart rate increased [Unknown]
  - Feeling abnormal [Unknown]
  - Malaise [Unknown]
  - Swelling [Unknown]
  - Tremor [Unknown]
  - Anxiety [Unknown]
  - Rash [Unknown]
  - Dizziness [Unknown]
  - Nausea [Unknown]
  - Asthenia [Unknown]
  - Hot flush [Unknown]
  - Blood glucose increased [Unknown]
  - Fatigue [Unknown]
